FAERS Safety Report 15163937 (Version 1)
Quarter: 2018Q3

REPORT INFORMATION
  Report Type: Spontaneous
  Country: ES (occurrence: ES)
  Receive Date: 20180719
  Receipt Date: 20180719
  Transmission Date: 20181010
  Serious: Yes (Other)
  Sender: FDA-Public Use
  Company Number: ES-TEVA-2018-ES-928700

PATIENT
  Age: 71 Year
  Sex: Female
  Weight: 66.5 kg

DRUGS (1)
  1. CELECOXIB 200 MG C?PSULA [Suspect]
     Active Substance: CELECOXIB
     Indication: SCIATICA
     Dosage: 200 MILLIGRAM DAILY; 1 CP / 24H FOR 7 DAYS
     Route: 048
     Dates: start: 20180222, end: 20180226

REACTIONS (3)
  - Tachycardia [Recovered/Resolved]
  - Headache [Recovered/Resolved]
  - Tremor [Recovered/Resolved]

NARRATIVE: CASE EVENT DATE: 20180224
